FAERS Safety Report 10076775 (Version 1)
Quarter: 2014Q2

REPORT INFORMATION
  Report Type: Spontaneous
  Country: IT (occurrence: IT)
  Receive Date: 20140414
  Receipt Date: 20140414
  Transmission Date: 20141212
  Serious: Yes (Hospitalization)
  Sender: FDA-Public Use
  Company Number: IT-PFIZER INC-2014100203

PATIENT
  Age: 78 Year
  Sex: Male

DRUGS (2)
  1. DIFLUCAN [Suspect]
     Indication: BALANOPOSTHITIS
     Dosage: 400 MG, DAILY
     Dates: start: 20131213, end: 20131213
  2. ESKIM [Concomitant]
     Indication: HYPERTRIGLYCERIDAEMIA
     Dosage: UNK
     Route: 048

REACTIONS (3)
  - Rash generalised [Recovering/Resolving]
  - Syncope [Recovering/Resolving]
  - Urticaria [Recovering/Resolving]
